FAERS Safety Report 24096666 (Version 1)
Quarter: 2024Q3

REPORT INFORMATION
  Report Type: Spontaneous
  Country: CA (occurrence: CA)
  Receive Date: 20240716
  Receipt Date: 20240716
  Transmission Date: 20241017
  Serious: Yes (Other)
  Sender: FRESENIUS KABI
  Company Number: CA-FreseniusKabi-FK202410935

PATIENT
  Age: 68 Year
  Sex: Female

DRUGS (2)
  1. FENTANYL [Suspect]
     Active Substance: FENTANYL\FENTANYL CITRATE
     Indication: Endoscopy upper gastrointestinal tract
     Dosage: FORM OF ADMIN-NOT SPECIFIED
     Route: 042
  2. MIDAZOLAM HYDROCHLORIDE [Suspect]
     Active Substance: MIDAZOLAM HYDROCHLORIDE
     Indication: Endoscopy upper gastrointestinal tract
     Dosage: FOA-LIQUID INTRAMUSCULAR
     Route: 042

REACTIONS (2)
  - Oxygen saturation decreased [Unknown]
  - Reversal of sedation [Unknown]
